FAERS Safety Report 4382657-7 (Version None)
Quarter: 2004Q2

REPORT INFORMATION
  Report Type: 
  Country: None (occurrence: None)
  Receive Date: 20040622
  Receipt Date: 20040610
  Transmission Date: 20050107
  Serious: Yes (Other)
  Sender: FDA-Public Use
  Company Number: 362972

PATIENT
  Sex: Male

DRUGS (1)
  1. DILATREND [Suspect]

REACTIONS (1)
  - URINARY RETENTION [None]
